FAERS Safety Report 9217268 (Version 1)
Quarter: 2013Q2

REPORT INFORMATION
  Report Type: Spontaneous
  Country: US (occurrence: US)
  Receive Date: 20130408
  Receipt Date: 20130408
  Transmission Date: 20140414
  Serious: No
  Sender: FDA-Public Use
  Company Number: US-PFIZER INC-2013106165

PATIENT
  Sex: Male

DRUGS (1)
  1. VANCOMYCIN HCL [Suspect]
     Dosage: 1500 MG, 2X/DAY

REACTIONS (5)
  - Incorrect dose administered [Unknown]
  - Drug level increased [Unknown]
  - Confusional state [Unknown]
  - Lethargy [Unknown]
  - Delusion [Unknown]
